FAERS Safety Report 9083437 (Version 3)
Quarter: 2013Q2

REPORT INFORMATION
  Report Type: Report from Study
  Country: FR (occurrence: FR)
  Receive Date: 20130130
  Receipt Date: 20130627
  Transmission Date: 20140414
  Serious: Yes (Death)
  Sender: FDA-Public Use
  Company Number: FR-ACTELION-A-CH2011-55501

PATIENT
  Age: 3 Year
  Sex: Female

DRUGS (1)
  1. ZAVESCA [Suspect]
     Indication: NIEMANN-PICK DISEASE
     Dosage: 150 MG, QD
     Route: 048
     Dates: start: 20100615

REACTIONS (3)
  - Niemann-Pick disease [Fatal]
  - Disease progression [Fatal]
  - Tremor [Recovered/Resolved]
